FAERS Safety Report 22013232 (Version 1)
Quarter: 2023Q1

REPORT INFORMATION
  Report Type: Spontaneous
  Country: EC (occurrence: EC)
  Receive Date: 20230220
  Receipt Date: 20230220
  Transmission Date: 20230418
  Serious: Yes (Hospitalization, Other)
  Sender: FDA-Public Use
  Company Number: EC-ALLERGAN-2304491US

PATIENT
  Sex: Male

DRUGS (1)
  1. BOTULINUM TOXIN TYPE A [Suspect]
     Active Substance: BOTULINUM TOXIN TYPE A
     Indication: Bell^s palsy
     Dosage: UNK, SINGLE

REACTIONS (3)
  - Pneumonia fungal [Recovered/Resolved]
  - Respiratory moniliasis [Recovered/Resolved]
  - Off label use [Unknown]
